FAERS Safety Report 4329810-6 (Version None)
Quarter: 2004Q1

REPORT INFORMATION
  Report Type: 
  Country: None (occurrence: None)
  Receive Date: 20040329
  Receipt Date: 20040316
  Transmission Date: 20041129
  Serious: Yes (Death, Other)
  Sender: FDA-Public Use
  Company Number: IT-SHR-04-022664

PATIENT
  Age: 86 Year
  Sex: Male

DRUGS (1)
  1. ULTRAVIST 300 [Suspect]
     Indication: COMPUTERISED TOMOGRAM ABDOMEN
     Dosage: 180 ML, 1 DOSE, INTRAVENOUS
     Route: 042
     Dates: start: 20040309, end: 20040309

REACTIONS (4)
  - CARDIO-RESPIRATORY ARREST [None]
  - CYANOSIS [None]
  - HEADACHE [None]
  - HYPERHIDROSIS [None]
